FAERS Safety Report 8587656-7 (Version None)
Quarter: 2012Q3

REPORT INFORMATION
  Report Type: 
  Country: None (occurrence: None)
  Receive Date: 20120812
  Receipt Date: 20120801
  Transmission Date: 20120928
  Serious: Yes (Other)
  Sender: FDA-Public Use
  Company Number: GB-MERCK-1208GBR002481

PATIENT

DRUGS (2)
  1. CITALOPRAM HYDROBROMIDE [Suspect]
  2. ZOCOR [Interacting]
     Indication: LIPIDS
     Dosage: 40 MG, UNK
     Route: 048
     Dates: start: 20120602, end: 20120622

REACTIONS (2)
  - FEELING ABNORMAL [None]
  - DRUG INTERACTION [None]
